FAERS Safety Report 6635293-3 (Version None)
Quarter: 2010Q1

REPORT INFORMATION
  Report Type: 
  Country: None (occurrence: None)
  Receive Date: 20100315
  Receipt Date: 20100302
  Transmission Date: 20100710
  Serious: Yes (Other)
  Sender: FDA-Public Use
  Company Number: FR-TYCO HEALTHCARE/MALLINCKRODT-T201000715

PATIENT
  Age: 63 Year

DRUGS (2)
  1. PENNSAID [Suspect]
     Indication: PERICARDIAL EFFUSION
     Dosage: 50 MG, BID
     Route: 048
  2. PROTON PUMP INHIBITORS [Concomitant]

REACTIONS (1)
  - CARDIAC TAMPONADE [None]
